FAERS Safety Report 5491588-0 (Version None)
Quarter: 2007Q4

REPORT INFORMATION
  Report Type: 
  Country: None (occurrence: None)
  Receive Date: 20071019
  Receipt Date: 20071019
  Transmission Date: 20080405
  Serious: Yes (Other)
  Sender: FDA-Public Use
  Company Number: None

PATIENT
  Age: 37 Year
  Sex: Male

DRUGS (3)
  1. LEVAQUIN [Suspect]
     Dates: start: 20050609, end: 20050620
  2. URSODIOL [Concomitant]
  3. ACCUPRIL [Concomitant]

REACTIONS (6)
  - DERMATITIS ACNEIFORM [None]
  - HEPATIC FIBROSIS [None]
  - HEPATITIS CHOLESTATIC [None]
  - MOBILITY DECREASED [None]
  - SPEECH DISORDER [None]
  - WEIGHT DECREASED [None]
